FAERS Safety Report 9874412 (Version 2)
Quarter: 2014Q1

REPORT INFORMATION
  Report Type: Spontaneous
  Country: HK (occurrence: HK)
  Receive Date: 20140206
  Receipt Date: 20140207
  Transmission Date: 20141002
  Serious: Yes (Other)
  Sender: FDA-Public Use
  Company Number: HK-MERCK-1401HKG013937

PATIENT
  Age: 50 Year
  Sex: Male

DRUGS (3)
  1. TEMOZOLOMIDE [Suspect]
     Indication: GLIOBLASTOMA MULTIFORME
     Dosage: 200 MG/M2 Q4W
     Dates: start: 2011, end: 2011
  2. TEMOZOLOMIDE [Suspect]
     Dosage: 75 MG/M2, QW
     Dates: start: 201105, end: 201106
  3. TEMOZOLOMIDE [Suspect]
     Dosage: 150 MG/M2, Q4W
     Dates: start: 2011, end: 201111

REACTIONS (3)
  - Disease progression [Not Recovered/Not Resolved]
  - Neutropenia [Unknown]
  - Thrombocytopenia [Unknown]
